FAERS Safety Report 6579910-5 (Version None)
Quarter: 2010Q1

REPORT INFORMATION
  Report Type: 
  Country: None (occurrence: None)
  Receive Date: 20100212
  Receipt Date: 20100204
  Transmission Date: 20100710
  Serious: Yes (Hospitalization)
  Sender: FDA-Public Use
  Company Number: GXKR2010PT01521

PATIENT
  Age: 30 Year
  Sex: Female

DRUGS (10)
  1. AMOXICILLIN-CLAVULANIC ACID (NGX) [Suspect]
     Indication: TOOTHACHE
     Dosage: 1 DF, BID
  2. SIMVASTATIN [Interacting]
     Dosage: 20 MG, QD
  3. PREDNISONE [Concomitant]
     Dosage: 20 MG, QD
  4. PREDNISONE [Concomitant]
     Dosage: 60 MG, QD
     Route: 048
  5. PREDNISONE [Concomitant]
     Dosage: 20 MG, QD
     Route: 048
  6. AZATHIOPRINE [Concomitant]
     Dosage: 50 MG, BID
  7. CAPTOPRIL [Concomitant]
     Dosage: 50 MG, BID
  8. FUROSEMIDE [Concomitant]
     Dosage: 20 MG, QD
  9. FUROSEMIDE [Concomitant]
     Dosage: 40 MG, BID
  10. FOLIC ACID [Concomitant]
     Dosage: 5 MG, QD

REACTIONS (15)
  - CONJUNCTIVAL HAEMORRHAGE [None]
  - DRUG HYPERSENSITIVITY [None]
  - DRUG INTERACTION [None]
  - EPIDERMOLYSIS [None]
  - HAEMATURIA [None]
  - HEPATOTOXICITY [None]
  - MYALGIA [None]
  - ODYNOPHAGIA [None]
  - PROTEINURIA [None]
  - PURPURA [None]
  - RASH [None]
  - RASH MACULO-PAPULAR [None]
  - RENAL FAILURE ACUTE [None]
  - RHABDOMYOLYSIS [None]
  - SKIN LESION [None]
